FAERS Safety Report 8576490-X (Version None)
Quarter: 2012Q3

REPORT INFORMATION
  Report Type: 
  Country: None (occurrence: None)
  Receive Date: 20120807
  Receipt Date: 20120727
  Transmission Date: 20120928
  Serious: No
  Sender: FDA-Public Use
  Company Number: US-ASTRAZENECA-2012SE53685

PATIENT
  Age: 59 Year
  Sex: Female
  Weight: 81.6 kg

DRUGS (9)
  1. PLAQUENIL [Concomitant]
  2. PEPCID [Concomitant]
  3. PRILOSEC [Suspect]
     Indication: GASTROOESOPHAGEAL REFLUX DISEASE
     Route: 048
  4. ZOCOR [Concomitant]
  5. NEXIUM [Suspect]
     Indication: GASTROOESOPHAGEAL REFLUX DISEASE
     Route: 048
  6. NORCO [Concomitant]
  7. NEXIUM [Suspect]
     Indication: GASTRIC ULCER
     Route: 048
  8. ALBUTEROL [Concomitant]
  9. FLEXERIL [Concomitant]

REACTIONS (3)
  - DRUG INEFFECTIVE [None]
  - FIBROMYALGIA [None]
  - RHEUMATOID ARTHRITIS [None]
